FAERS Safety Report 21051357 (Version 1)
Quarter: 2022Q3

REPORT INFORMATION
  Report Type: Spontaneous
  Country: FR (occurrence: FR)
  Receive Date: 20220707
  Receipt Date: 20220707
  Transmission Date: 20221026
  Serious: Yes (Hospitalization, Other)
  Sender: FDA-Public Use
  Company Number: FR-JNJFOC-20220401047

PATIENT
  Age: 87 Year
  Sex: Male
  Weight: 76 kg

DRUGS (4)
  1. ERDAFITINIB [Suspect]
     Active Substance: ERDAFITINIB
     Indication: Transitional cell carcinoma
     Dosage: 2 MONTHS OF TREATMENT 480 MG
     Route: 048
     Dates: start: 202105, end: 20210721
  2. KARDEGIC [Concomitant]
     Active Substance: ASPIRIN DL-LYSINE
     Indication: Myocardial ischaemia
  3. CELIPROLOL [Concomitant]
     Active Substance: CELIPROLOL
     Indication: Myocardial ischaemia
  4. PRAVASTATIN SODIUM [Concomitant]
     Active Substance: PRAVASTATIN SODIUM
     Indication: Myocardial ischaemia

REACTIONS (5)
  - General physical condition abnormal [Recovered/Resolved]
  - Onycholysis [Recovering/Resolving]
  - Conjunctivitis [Recovered/Resolved]
  - Nervous system disorder [Unknown]
  - Therapy interrupted [Unknown]

NARRATIVE: CASE EVENT DATE: 20210701
